FAERS Safety Report 5307691-1 (Version None)
Quarter: 2007Q2

REPORT INFORMATION
  Report Type: 
  Country: None (occurrence: None)
  Receive Date: 20070419
  Receipt Date: 20070404
  Transmission Date: 20071010
  Serious: Yes (Life-Threatening, Hospitalization, Other)
  Sender: FDA-Public Use
  Company Number: 2007US000446

PATIENT
  Age: 30 Year
  Sex: Male

DRUGS (9)
  1. AMBISOME [Suspect]
     Indication: CORNEAL ABSCESS
     Dosage: 3 MG/KG, UNK, IV NOS
     Route: 042
     Dates: start: 20061213, end: 20061213
  2. GENTAMYCIN-MP (GENTAMICIN SULFATE) [Concomitant]
  3. VANCOMYCIN HYDROCHLORIDE [Concomitant]
  4. TICARCILLIN (TICARCILLIN) [Concomitant]
  5. TIENAM (IMIPENEM, CILASTATIN SODIUM) [Concomitant]
  6. OFLOXACIN [Concomitant]
  7. COLLYRIUM (SALICYLATE SODIUM, BORIC ACID, PHENAZONE, SODIUM BORATE) [Concomitant]
  8. ITRACONAZOLE [Concomitant]
  9. FUNGIZONE [Concomitant]

REACTIONS (2)
  - ANAPHYLACTIC SHOCK [None]
  - ANGIOEDEMA [None]
